FAERS Safety Report 6211016-7 (Version None)
Quarter: 2009Q2

REPORT INFORMATION
  Report Type: 
  Country: None (occurrence: None)
  Receive Date: 20090528
  Receipt Date: 20090513
  Transmission Date: 20091009
  Serious: Yes (Death)
  Sender: FDA-Public Use
  Company Number: 2009AL001457

PATIENT
  Age: 32 Year
  Sex: Female

DRUGS (10)
  1. DIGOXIN [Suspect]
     Dosage: 0.25 MG, DAILY, PO
     Route: 048
     Dates: start: 20000427, end: 20080219
  2. HYDROCODONE BITARTRATE [Concomitant]
  3. PROPOXYPHEN [Concomitant]
  4. SULFAMETHOXAZOLE AND TRIMETHOPRIM [Concomitant]
  5. FUROSEMIDE [Concomitant]
  6. CIPROFLOXACIN [Concomitant]
  7. KLOR-CON [Concomitant]
  8. POTASSIUM CHLORIDE [Concomitant]
  9. WARFARIN [Concomitant]
  10. CITALOPRAM HYDROBROMIDE [Concomitant]

REACTIONS (2)
  - ECONOMIC PROBLEM [None]
  - INJURY [None]
